FAERS Safety Report 20237241 (Version 1)
Quarter: 2021Q4

REPORT INFORMATION
  Report Type: Spontaneous
  Country: US (occurrence: US)
  Receive Date: 20211228
  Receipt Date: 20211228
  Transmission Date: 20220303
  Serious: No
  Sender: FDA-Public Use
  Company Number: US-BRISTOL-MYERS SQUIBB COMPANY-BMS-2021-138700

PATIENT
  Age: 41 Year
  Sex: Male
  Weight: 85.27 kg

DRUGS (1)
  1. SPRYCEL [Suspect]
     Active Substance: DASATINIB
     Indication: Myeloid leukaemia
     Dosage: 100 MILLIGRAM, QD
     Route: 048
     Dates: start: 2021

REACTIONS (3)
  - Product storage error [Unknown]
  - Drug ineffective [Unknown]
  - Blood test abnormal [Unknown]
